FAERS Safety Report 5162173-5 (Version None)
Quarter: 2006Q4

REPORT INFORMATION
  Report Type: 
  Country: None (occurrence: None)
  Receive Date: 20061121
  Receipt Date: 20061107
  Transmission Date: 20070319
  Serious: Yes (Hospitalization, Other)
  Sender: FDA-Public Use
  Company Number: 2006BH014494

PATIENT
  Age: 26 Year
  Sex: Male

DRUGS (3)
  1. PHYSIONEAL 35 [Suspect]
     Indication: DIABETIC NEPHROPATHY
     Dosage: 4 L; EVERY DAY; IP
     Route: 033
     Dates: start: 20060813
  2. EXTRANEAL [Suspect]
     Indication: DIABETIC NEPHROPATHY
     Dosage: 2 L; EVERY DAY; IP
     Route: 033
     Dates: start: 20060813
  3. NUTRINEAL [Suspect]
     Indication: DIABETIC NEPHROPATHY
     Dosage: 2 L; EVERY DAY; IP
     Route: 033
     Dates: start: 20060813

REACTIONS (5)
  - PANCREATITIS ACUTE [None]
  - PERITONITIS [None]
  - PHARMACEUTICAL PRODUCT COMPLAINT [None]
  - POOR QUALITY DRUG ADMINISTERED [None]
  - STAPHYLOCOCCAL INFECTION [None]
